FAERS Safety Report 7503056-2 (Version None)
Quarter: 2011Q2

REPORT INFORMATION
  Report Type: 
  Country: None (occurrence: None)
  Receive Date: 20110525
  Receipt Date: 20110111
  Transmission Date: 20111010
  Serious: No
  Sender: FDA-Public Use
  Company Number: US-BAUSCH-2011BL000194

PATIENT
  Age: 7 Year
  Sex: Male

DRUGS (2)
  1. CYCLOPENTOLATE HYDROCHLORIDE [Suspect]
     Indication: OPHTHALMOLOGICAL EXAMINATION
     Route: 047
     Dates: start: 20110110, end: 20110110
  2. PROPARACAINE HCL [Suspect]
     Indication: OPHTHALMOLOGICAL EXAMINATION
     Route: 047
     Dates: start: 20110110, end: 20110110

REACTIONS (1)
  - RASH [None]
